FAERS Safety Report 12668347 (Version 5)
Quarter: 2017Q3

REPORT INFORMATION
  Report Type: Spontaneous
  Country: CA (occurrence: CA)
  Receive Date: 20160819
  Receipt Date: 20170710
  Transmission Date: 20171127
  Serious: Yes (Death, Hospitalization, Other)
  Sender: FDA-Public Use
  Company Number: CA-PFIZER INC-2016390383

PATIENT
  Age: 82 Year
  Sex: Female

DRUGS (2)
  1. XELJANZ [Suspect]
     Active Substance: TOFACITINIB CITRATE
     Indication: RHEUMATOID ARTHRITIS
     Dosage: 5 MG, 2X/DAY
     Route: 048
     Dates: start: 20160730
  2. METHOTREXATE. [Concomitant]
     Active Substance: METHOTREXATE
     Indication: RHEUMATOID ARTHRITIS
     Dosage: 12.5 MG, WEEKLY

REACTIONS (4)
  - Diabetes mellitus inadequate control [Not Recovered/Not Resolved]
  - Amnesia [Unknown]
  - Death [Fatal]
  - Diverticulitis [Unknown]

NARRATIVE: CASE EVENT DATE: 2016
